FAERS Safety Report 17410574 (Version 1)
Quarter: 2020Q1

REPORT INFORMATION
  Report Type: Spontaneous
  Country: GB (occurrence: GB)
  Receive Date: 20200212
  Receipt Date: 20200212
  Transmission Date: 20200409
  Serious: Yes (Life-Threatening, Hospitalization)
  Sender: FDA-Public Use
  Company Number: NVSC2020GB036126

PATIENT
  Age: 67 Year
  Sex: Male

DRUGS (5)
  1. RANITIDINE. [Concomitant]
     Active Substance: RANITIDINE
     Indication: PRODUCT USED FOR UNKNOWN INDICATION
     Dosage: UNK
     Route: 065
  2. SODIUM VALPROATE [Suspect]
     Active Substance: VALPROATE SODIUM
     Indication: EPILEPSY
     Dosage: 1800 MG, QD
     Route: 048
     Dates: start: 20111206
  3. CARBAMAZEPINE. [Suspect]
     Active Substance: CARBAMAZEPINE
     Indication: EPILEPSY
     Dosage: 1000 MG, QD (400MG IN THE MORNING AND 600MG AT NIGHT)
     Route: 048
     Dates: start: 20111206
  4. PARACETAMOL [Concomitant]
     Active Substance: ACETAMINOPHEN
     Indication: INFECTION
     Dosage: ON APPROPRIATE DOSES AS PER DIALYSIS
     Route: 048
  5. CO-AMOXICLAV [Concomitant]
     Active Substance: AMOXICILLIN\CLAVULANATE POTASSIUM
     Indication: INFECTION
     Dosage: ON APPROPRIATE DOSES AS PER DIALYSIS
     Route: 042

REACTIONS (4)
  - Rhabdomyolysis [Not Recovered/Not Resolved]
  - Dyspnoea [Unknown]
  - Confusional state [Unknown]
  - Hyperkalaemia [Unknown]

NARRATIVE: CASE EVENT DATE: 20191104
